FAERS Safety Report 4794492-6 (Version None)
Quarter: 2005Q4

REPORT INFORMATION
  Report Type: 
  Country: None (occurrence: None)
  Receive Date: 20051011
  Receipt Date: 20050927
  Transmission Date: 20060501
  Serious: Yes (Other)
  Sender: FDA-Public Use
  Company Number: PHBS2005JP14250

PATIENT
  Age: 59 Year
  Sex: Male

DRUGS (3)
  1. METFORMIN HCL [Concomitant]
     Route: 048
  2. BASEN [Concomitant]
  3. DIOVAN [Suspect]
     Route: 048
     Dates: start: 20030101

REACTIONS (2)
  - ANGIONEUROTIC OEDEMA [None]
  - URTICARIA [None]
